FAERS Safety Report 17501498 (Version 4)
Quarter: 2020Q2

REPORT INFORMATION
  Report Type: Report from Study
  Country: CA (occurrence: CA)
  Receive Date: 20200305
  Receipt Date: 20200521
  Transmission Date: 20200713
  Serious: Yes (Other)
  Sender: FDA-Public Use
  Company Number: CA-JNJFOC-20200220339

PATIENT
  Age: 58 Year
  Sex: Female
  Weight: 65.32 kg

DRUGS (2)
  1. STELARA [Suspect]
     Active Substance: USTEKINUMAB
     Indication: PSORIATIC ARTHROPATHY
     Route: 058
     Dates: start: 20161011
  2. STELARA [Suspect]
     Active Substance: USTEKINUMAB

REACTIONS (8)
  - Ear disorder [Unknown]
  - Joint swelling [Unknown]
  - Sinusitis [Recovered/Resolved]
  - Influenza [Recovered/Resolved]
  - Pulmonary congestion [Unknown]
  - Pain in extremity [Not Recovered/Not Resolved]
  - Lower respiratory tract infection [Recovered/Resolved]
  - Allergy to animal [Not Recovered/Not Resolved]

NARRATIVE: CASE EVENT DATE: 20200211
